FAERS Safety Report 10094218 (Version 1)
Quarter: 2014Q2

REPORT INFORMATION
  Report Type: Spontaneous
  Country: US (occurrence: US)
  Receive Date: 20140422
  Receipt Date: 20140422
  Transmission Date: 20141212
  Serious: Yes (Hospitalization, Other)
  Sender: FDA-Public Use
  Company Number: US-AMGEN INC.-USASP2014028666

PATIENT
  Age: 49 Year
  Sex: Female

DRUGS (2)
  1. ENBREL [Suspect]
     Indication: RHEUMATOID ARTHRITIS
     Dosage: 50 MG, QWK
     Route: 065
     Dates: start: 1996
  2. METHOTREXATE [Concomitant]
     Dosage: UNK MG, UNK
     Route: 048
     Dates: start: 1995, end: 2003

REACTIONS (15)
  - Joint swelling [Recovered/Resolved]
  - Cardiac disorder [Unknown]
  - Pain [Recovered/Resolved]
  - Gait disturbance [Recovered/Resolved]
  - Feeling hot [Recovered/Resolved]
  - Arthralgia [Recovered/Resolved]
  - Choking sensation [Unknown]
  - Urinary tract infection [Unknown]
  - Chest pain [Unknown]
  - Pain in extremity [Recovered/Resolved]
  - Mobility decreased [Recovered/Resolved]
  - Joint range of motion decreased [Not Recovered/Not Resolved]
  - Fibromyalgia [Unknown]
  - Peripheral swelling [Recovered/Resolved]
  - Herpes zoster [Recovered/Resolved]
